FAERS Safety Report 10058230 (Version 2)
Quarter: 2014Q3

REPORT INFORMATION
  Report Type: Spontaneous
  Country: AU (occurrence: AU)
  Receive Date: 20140404
  Receipt Date: 20140710
  Transmission Date: 20150326
  Serious: Yes (Life-Threatening)
  Sender: FDA-Public Use
  Company Number: AU-JNJFOC-20140318528

PATIENT
  Age: 5 Decade
  Sex: Female
  Weight: 70 kg

DRUGS (7)
  1. REMICADE [Suspect]
     Active Substance: INFLIXIMAB
     Indication: PSORIATIC ARTHROPATHY
     Dosage: 210 MG
     Route: 042
     Dates: start: 201401, end: 20140216
  2. PARIET [Concomitant]
     Active Substance: RABEPRAZOLE SODIUM
     Indication: GASTROOESOPHAGEAL REFLUX DISEASE
     Route: 065
  3. LYRICA [Concomitant]
     Active Substance: PREGABALIN
     Indication: NEURALGIA
     Route: 065
  4. LUVOX [Concomitant]
     Active Substance: FLUVOXAMINE MALEATE
     Indication: ANTIDEPRESSANT THERAPY
     Route: 065
  5. EPILIM [Concomitant]
     Active Substance: VALPROATE SODIUM
     Route: 065
  6. REMICADE [Suspect]
     Active Substance: INFLIXIMAB
     Indication: PSORIATIC ARTHROPATHY
     Dosage: 210 MG
     Route: 042
     Dates: start: 20131217, end: 20131217
  7. METHOTREXATE [Concomitant]
     Active Substance: METHOTREXATE
     Indication: PSORIATIC ARTHROPATHY
     Route: 065

REACTIONS (2)
  - Infusion related reaction [Recovering/Resolving]
  - Guillain-Barre syndrome [Recovering/Resolving]

NARRATIVE: CASE EVENT DATE: 201401
